FAERS Safety Report 7681303-4 (Version None)
Quarter: 2011Q3

REPORT INFORMATION
  Report Type: 
  Country: None (occurrence: None)
  Receive Date: 20110812
  Receipt Date: 20110803
  Transmission Date: 20111222
  Serious: Yes (Hospitalization)
  Sender: FDA-Public Use
  Company Number: US-JNJFOC-20110206524

PATIENT
  Sex: Female
  Weight: 51.8 kg

DRUGS (5)
  1. REMICADE [Suspect]
     Route: 042
     Dates: start: 20110115
  2. REMICADE [Suspect]
     Indication: COLITIS ULCERATIVE
     Route: 042
     Dates: start: 20091111
  3. PREDNISONE [Concomitant]
  4. REMICADE [Suspect]
     Route: 042
     Dates: start: 20101218
  5. MESALAMINE [Concomitant]
     Route: 048

REACTIONS (2)
  - COLITIS ULCERATIVE [None]
  - PYREXIA [None]
